FAERS Safety Report 25185143 (Version 1)
Quarter: 2025Q2

REPORT INFORMATION
  Report Type: Spontaneous
  Country: TW (occurrence: TW)
  Receive Date: 20250410
  Receipt Date: 20250410
  Transmission Date: 20250716
  Serious: Yes (Death, Life-Threatening, Hospitalization, Other)
  Sender: FRESENIUS KABI
  Company Number: TW-FreseniusKabi-FK202505033

PATIENT
  Age: 62 Year
  Sex: Male
  Weight: 73.1 kg

DRUGS (19)
  1. CARBOPLATIN [Suspect]
     Active Substance: CARBOPLATIN
     Indication: Non-small cell lung cancer
     Route: 042
     Dates: start: 20250114, end: 20250114
  2. PEMETREXED [Suspect]
     Active Substance: PEMETREXED
     Indication: Non-small cell lung cancer
     Route: 042
     Dates: start: 20250114, end: 20250114
  3. PEMBROLIZUMAB [Suspect]
     Active Substance: PEMBROLIZUMAB
     Indication: Non-small cell lung cancer
     Route: 042
     Dates: start: 20250114, end: 20250114
  4. OLOMORASIB [Suspect]
     Active Substance: OLOMORASIB
     Indication: Non-small cell lung cancer
     Route: 042
     Dates: start: 20250114, end: 20250119
  5. TRAMADOL HYDROCHLORIDE AND ACETAMINOPHEN [Concomitant]
     Active Substance: ACETAMINOPHEN\TRAMADOL HYDROCHLORIDE
     Indication: Tumour pain
  6. PREGABALIN [Concomitant]
     Active Substance: PREGABALIN
     Indication: Tumour pain
  7. FOLIC ACID [Concomitant]
     Active Substance: FOLIC ACID
     Indication: Prophylaxis
  8. DOMPERIDONE [Concomitant]
     Active Substance: DOMPERIDONE
     Indication: Gastrooesophageal reflux disease
  9. TRAMADOL [Concomitant]
     Active Substance: TRAMADOL
     Indication: Tumour pain
  10. DIPHENHYDRAMINE [Concomitant]
     Active Substance: DIPHENHYDRAMINE
     Indication: Prophylaxis
  11. NETUPITANT\PALONOSETRON [Concomitant]
     Active Substance: NETUPITANT\PALONOSETRON
     Indication: Prophylaxis
  12. BETAMETHASONE [Concomitant]
     Active Substance: BETAMETHASONE
     Indication: Prophylaxis
  13. METFORMIN [Concomitant]
     Active Substance: METFORMIN HYDROCHLORIDE
     Indication: Diabetes mellitus
  14. BISOPROLOL FUMARATE [Concomitant]
     Active Substance: BISOPROLOL FUMARATE
     Indication: Cardiac disorder
  15. ATORVASTATIN [Concomitant]
     Active Substance: ATORVASTATIN
     Indication: Hyperlipidaemia
  16. OLMESARTAN [Concomitant]
     Active Substance: OLMESARTAN
     Indication: Hypertension
  17. PEMBROLIZUMAB [Concomitant]
     Active Substance: PEMBROLIZUMAB
     Indication: Non-small cell lung cancer
     Dates: start: 20250114
  18. MORPHINE [Concomitant]
     Active Substance: MORPHINE
     Indication: Prophylaxis
  19. PROPOFOL [Concomitant]
     Active Substance: PROPOFOL
     Indication: Prophylaxis

REACTIONS (17)
  - Neutropenia [Fatal]
  - Septic shock [Unknown]
  - Sepsis [Unknown]
  - Lung neoplasm malignant [Unknown]
  - Upper gastrointestinal haemorrhage [Unknown]
  - Hyperkalaemia [Unknown]
  - Metabolic acidosis [Unknown]
  - Ascites [Unknown]
  - Gastrointestinal haemorrhage [Unknown]
  - Atrial fibrillation [Unknown]
  - Thrombocytopenic purpura [Unknown]
  - Acute kidney injury [Unknown]
  - Blood creatinine increased [Unknown]
  - Hypoalbuminaemia [Unknown]
  - Eczema asteatotic [Unknown]
  - Herpes simplex [Unknown]
  - Drug eruption [Unknown]

NARRATIVE: CASE EVENT DATE: 20250120
